FAERS Safety Report 24112394 (Version 1)
Quarter: 2024Q3

REPORT INFORMATION
  Report Type: Report from Study
  Country: GB (occurrence: None)
  Receive Date: 20240719
  Receipt Date: 20240719
  Transmission Date: 20241017
  Serious: Yes (Other)
  Sender: ASTRAZENECA
  Company Number: 2020SF10926

PATIENT
  Sex: Male

DRUGS (1)
  1. FASENRA [Suspect]
     Active Substance: BENRALIZUMAB
     Indication: Ill-defined disorder
     Dosage: 30.0MG UNKNOWN
     Route: 058

REACTIONS (5)
  - Cerebrovascular accident [Not Recovered/Not Resolved]
  - Muscle spasms [Not Recovered/Not Resolved]
  - Malaise [Unknown]
  - Cardiac discomfort [Unknown]
  - Therapeutic product effect decreased [Unknown]
